FAERS Safety Report 25505913 (Version 1)
Quarter: 2025Q3

REPORT INFORMATION
  Report Type: Spontaneous
  Country: EU (occurrence: EU)
  Receive Date: 20250702
  Receipt Date: 20250702
  Transmission Date: 20251021
  Serious: Yes (Hospitalization, Other)
  Sender: SANDOZ
  Company Number: EU-SUN PHARMACEUTICAL INDUSTRIES LTD-2021R1-314393

PATIENT
  Age: 26 Year
  Sex: Female

DRUGS (14)
  1. AZACITIDINE [Suspect]
     Active Substance: AZACITIDINE
     Indication: Acute myeloid leukaemia
     Dosage: 100 MG, QD
     Route: 065
     Dates: start: 202007
  2. AZACITIDINE [Suspect]
     Active Substance: AZACITIDINE
     Route: 065
     Dates: start: 202007
  3. AZACITIDINE [Suspect]
     Active Substance: AZACITIDINE
     Route: 065
     Dates: start: 2021
  4. CYTARABINE [Suspect]
     Active Substance: CYTARABINE
     Route: 065
  5. CYTARABINE [Suspect]
     Active Substance: CYTARABINE
     Indication: Acute myeloid leukaemia
     Route: 065
  6. FILGRASTIM [Suspect]
     Active Substance: FILGRASTIM
     Indication: Acute myeloid leukaemia
     Route: 065
  7. FLUDARABINE [Suspect]
     Active Substance: FLUDARABINE PHOSPHATE
     Indication: Acute myeloid leukaemia
     Route: 065
  8. IDARUBICIN [Suspect]
     Active Substance: IDARUBICIN
     Indication: Acute myeloid leukaemia
     Route: 065
  9. QUIZARTINIB [Suspect]
     Active Substance: QUIZARTINIB
     Indication: Acute myeloid leukaemia
     Route: 065
  10. VENETOCLAX [Suspect]
     Active Substance: VENETOCLAX
     Dosage: NEXT CYCLE
     Route: 065
     Dates: start: 2021
  11. VENETOCLAX [Suspect]
     Active Substance: VENETOCLAX
     Indication: Acute myeloid leukaemia
     Dosage: UP TITRATED TO 400MG
     Route: 065
     Dates: start: 202010
  12. VENETOCLAX [Suspect]
     Active Substance: VENETOCLAX
     Route: 065
     Dates: start: 2021
  13. VENETOCLAX [Suspect]
     Active Substance: VENETOCLAX
     Route: 065
     Dates: start: 202011
  14. POSACONAZOLE [Concomitant]
     Active Substance: POSACONAZOLE
     Indication: Antifungal prophylaxis
     Route: 065

REACTIONS (10)
  - Pyrexia [Unknown]
  - Disease progression [Unknown]
  - Febrile neutropenia [Unknown]
  - Asthenia [Unknown]
  - Graft versus host disease in skin [Unknown]
  - Myelosuppression [Unknown]
  - Bronchopulmonary aspergillosis [Unknown]
  - Localised infection [Unknown]
  - Paronychia [Unknown]
  - Drug ineffective [Unknown]
